FAERS Safety Report 4281394-7 (Version None)
Quarter: 2004Q1

REPORT INFORMATION
  Report Type: 
  Country: None (occurrence: None)
  Receive Date: 20040109
  Receipt Date: 20030718
  Transmission Date: 20041129
  Serious: No
  Sender: FDA-Public Use
  Company Number: US042911

PATIENT
  Age: 79 Year
  Sex: Female

DRUGS (2)
  1. KINERET [Suspect]
     Indication: RHEUMATOID ARTHRITIS
     Dosage: 100 MG, DAILY, SC
     Route: 058
     Dates: start: 20020101
  2. ESOMEPRAZOLE MAGNESIUM [Concomitant]

REACTIONS (3)
  - ARTHRALGIA [None]
  - LARYNGITIS [None]
  - RESPIRATORY TRACT INFECTION [None]
